FAERS Safety Report 13980182 (Version 3)
Quarter: 2018Q1

REPORT INFORMATION
  Report Type: Spontaneous
  Country: DE (occurrence: DE)
  Receive Date: 20170917
  Receipt Date: 20180125
  Transmission Date: 20180508
  Serious: Yes (Hospitalization, Other)
  Sender: FDA-Public Use
  Company Number: PHHY2017DE133951

PATIENT
  Age: 16 Year
  Sex: Female
  Weight: 58.5 kg

DRUGS (2)
  1. L-THYROXINE [Concomitant]
     Active Substance: LEVOTHYROXINE
     Indication: HYPOTHYROIDISM
     Dosage: 100 MG, QD
     Route: 048
  2. ILARIS [Suspect]
     Active Substance: CANAKINUMAB
     Indication: STILL^S DISEASE
     Dosage: 150 MG,ONCE
     Route: 058
     Dates: start: 20170526, end: 20170526

REACTIONS (8)
  - Autoinflammatory disease [Unknown]
  - Liver function test abnormal [Recovered/Resolved]
  - Autoimmune hepatitis [Unknown]
  - Aspartate aminotransferase increased [Recovered/Resolved]
  - Cholecystitis [Unknown]
  - Alanine aminotransferase increased [Recovered/Resolved]
  - Drug-induced liver injury [Unknown]
  - Gamma-glutamyltransferase increased [Recovered/Resolved]

NARRATIVE: CASE EVENT DATE: 20170608
